FAERS Safety Report 5154731-9 (Version None)
Quarter: 2006Q4

REPORT INFORMATION
  Report Type: 
  Country: None (occurrence: None)
  Receive Date: 20061115
  Receipt Date: 20061115
  Transmission Date: 20070319
  Serious: No
  Sender: FDA-Public Use
  Company Number: None

PATIENT
  Sex: Male
  Weight: 116.82 kg

DRUGS (3)
  1. FLUOROURACIL [Suspect]
     Dosage: 6600 MG
     Dates: end: 20061110
  2. LEUCOVORIN CALCIUM [Suspect]
     Dosage: 950 MG
     Dates: end: 20061110
  3. ELOXATIN [Suspect]
     Dosage: 200 MG
     Dates: end: 20061110

REACTIONS (2)
  - CHEST DISCOMFORT [None]
  - PULMONARY EMBOLISM [None]
